FAERS Safety Report 12742520 (Version 1)
Quarter: 2016Q3

REPORT INFORMATION
  Report Type: Spontaneous
  Country: US (occurrence: US)
  Receive Date: 20160913
  Receipt Date: 20160913
  Transmission Date: 20161109
  Serious: Yes (Life-Threatening, Hospitalization)
  Sender: FDA-Public Use
  Company Number: None

PATIENT
  Age: 66 Year
  Sex: Male
  Weight: 92.3 kg

DRUGS (1)
  1. LORAZEPAM. [Suspect]
     Active Substance: LORAZEPAM
     Indication: PANIC ATTACK
     Dates: start: 20160331, end: 20160331

REACTIONS (3)
  - Respiratory depression [None]
  - Tachypnoea [None]
  - Anaphylactic reaction [None]

NARRATIVE: CASE EVENT DATE: 20160331
